FAERS Safety Report 8118253-5 (Version None)
Quarter: 2012Q1

REPORT INFORMATION
  Report Type: 
  Country: None (occurrence: None)
  Receive Date: 20120207
  Receipt Date: 20120130
  Transmission Date: 20120608
  Serious: Yes (Other)
  Sender: FDA-Public Use
  Company Number: US-CELGENEUS-163-21880-11100755

PATIENT
  Sex: Male
  Weight: 73.094 kg

DRUGS (10)
  1. EPIDURALS [Concomitant]
     Route: 024
     Dates: start: 20000101
  2. LISINOPRIL [Concomitant]
     Dosage: 5 MILLIGRAM
     Route: 048
     Dates: start: 20101214
  3. DEXAMETHASONE [Concomitant]
     Dosage: 4 MILLIGRAM
     Route: 048
     Dates: start: 20110901
  4. M.V.I. [Concomitant]
     Route: 048
     Dates: start: 20100601
  5. LORTAB [Concomitant]
     Dosage: 10/500
     Route: 048
     Dates: start: 20000101
  6. DEXAMETHASONE [Concomitant]
     Dosage: 40 MILLIGRAM
     Route: 048
     Dates: start: 20100614, end: 20110901
  7. REVLIMID [Suspect]
     Indication: MULTIPLE MYELOMA
     Dosage: 25 MILLIGRAM
     Route: 048
     Dates: start: 20100614, end: 20111001
  8. MORPHINE [Concomitant]
     Dosage: 30 MILLIGRAM
     Route: 048
     Dates: start: 20100601
  9. VELCADE [Concomitant]
     Route: 065
  10. COUMADIN [Concomitant]
     Dosage: 1/2
     Route: 048
     Dates: start: 20110601

REACTIONS (1)
  - LUNG NEOPLASM MALIGNANT [None]
